FAERS Safety Report 7511019 (Version 3)
Quarter: 2013Q1

REPORT INFORMATION
  Report Type: Spontaneous
  Country: US (occurrence: US)
  Receive Date: 20100730
  Receipt Date: 20130311
  Transmission Date: 20140127
  Serious: Yes (Hospitalization, Other)
  Sender: FDA-Public Use
  Company Number: US-BIOGENIDEC-2008BI003070

PATIENT
  Age: 49 None
  Sex: Male
  Weight: 72 kg

DRUGS (4)
  1. AVONEX [Suspect]
     Indication: MULTIPLE SCLEROSIS
     Route: 030
     Dates: start: 20020523
  2. AVONEX [Suspect]
     Indication: MULTIPLE SCLEROSIS
     Route: 030
  3. VICODIN [Concomitant]
     Indication: PAIN
     Route: 048
  4. BACLOFEN [Concomitant]
     Indication: MUSCLE SPASMS
     Route: 048

REACTIONS (10)
  - Pulmonary oedema [Recovered/Resolved]
  - Cardiomegaly [Recovered/Resolved]
  - Silent myocardial infarction [Recovered/Resolved]
  - Ischaemic cardiomyopathy [Unknown]
  - Cardiomyopathy [Recovered/Resolved]
  - Coronary artery occlusion [Unknown]
  - Convulsion [Unknown]
  - Needle track marks [Not Recovered/Not Resolved]
  - Post procedural discomfort [Not Recovered/Not Resolved]
  - Dyspnoea [Recovered/Resolved]
